FAERS Safety Report 5280957-X (Version None)
Quarter: 2007Q1

REPORT INFORMATION
  Report Type: 
  Country: None (occurrence: None)
  Receive Date: 20070329
  Receipt Date: 20070315
  Transmission Date: 20070707
  Serious: Yes (Hospitalization)
  Sender: FDA-Public Use
  Company Number: US-SHR-US-2007-002297

PATIENT
  Age: 48 Year
  Sex: Female

DRUGS (2)
  1. BETASERON [Suspect]
     Dosage: 8 MIU, EVERY 2D
     Route: 058
     Dates: start: 20050607
  2. ANTIBIOTICS [Concomitant]
     Route: 042

REACTIONS (11)
  - ARTHRITIS INFECTIVE [None]
  - BACK PAIN [None]
  - BACTERIAL PYELONEPHRITIS [None]
  - CHEST PAIN [None]
  - ENDOCARDITIS BACTERIAL [None]
  - FALL [None]
  - INFLUENZA [None]
  - MUSCULOSKELETAL PAIN [None]
  - ROAD TRAFFIC ACCIDENT [None]
  - SEPSIS [None]
  - SOFT TISSUE INJURY [None]
